FAERS Safety Report 9507140 (Version 1)
Quarter: 2013Q1

REPORT INFORMATION
  Report Type: Spontaneous
  Country: US (occurrence: None)
  Receive Date: 20130305
  Receipt Date: 20130305
  Transmission Date: 20140127
  Serious: Yes (Other)
  Sender: FDA-Public Use
  Company Number: 163-21880-12050631

PATIENT
  Age: 68 Year
  Sex: Female
  Weight: 60.69 kg

DRUGS (2)
  1. REVLIMID (LENALIDOMIDE) (CAPSULES) [Suspect]
     Indication: PLASMA CELL MYELOMA
     Route: 048
     Dates: start: 20100519
  2. LISINOPRIL (LISINOPRIL) [Concomitant]

REACTIONS (2)
  - Cough [None]
  - Nasopharyngitis [None]
